FAERS Safety Report 7272870-3 (Version None)
Quarter: 2011Q1

REPORT INFORMATION
  Report Type: 
  Country: None (occurrence: None)
  Receive Date: 20110126
  Receipt Date: 20110113
  Transmission Date: 20110831
  Serious: Yes (Hospitalization)
  Sender: FDA-Public Use
  Company Number: 023440

PATIENT
  Sex: Male

DRUGS (10)
  1. CERTOLIZUMAB PEGOL (CERTOLIZUMAB PEGOL) COLD PREPARATION)) (NOT SPECIF [Suspect]
     Indication: RHEUMATOID ARTHRITIS
     Dosage: SUBCUTANEOUS; 200MG 1X/2 WEEKS SUBCUTANEOUS; 200MG 1X/2 WEEKS SUBCUTANEOUS
     Route: 058
     Dates: start: 20091015, end: 20091126
  2. CERTOLIZUMAB PEGOL (CERTOLIZUMAB PEGOL) COLD PREPARATION)) (NOT SPECIF [Suspect]
     Indication: RHEUMATOID ARTHRITIS
     Dosage: SUBCUTANEOUS; 200MG 1X/2 WEEKS SUBCUTANEOUS; 200MG 1X/2 WEEKS SUBCUTANEOUS
     Route: 058
     Dates: start: 20101221
  3. CERTOLIZUMAB PEGOL (CERTOLIZUMAB PEGOL) COLD PREPARATION)) (NOT SPECIF [Suspect]
     Indication: RHEUMATOID ARTHRITIS
     Dosage: SUBCUTANEOUS; 200MG 1X/2 WEEKS SUBCUTANEOUS; 200MG 1X/2 WEEKS SUBCUTANEOUS
     Route: 058
     Dates: start: 20090630
  4. KETOPROFEN [Concomitant]
  5. PELEX/004113001/ (PELEX( NON-PYRINE COLD PREPARATION() (NOT SPECIFIED) [Suspect]
     Indication: NASOPHARYNGITIS
     Dosage: (3 MG ORAL)
     Dates: start: 20101126
  6. PREDNISOLONE [Concomitant]
  7. MOBIC [Suspect]
     Indication: RHEUMATOID ARTHRITIS
     Dosage: 15 MG, 10MG AND 5MG, ORAL
     Route: 048
     Dates: start: 20060427
  8. AZULFIDINE EN-TABS [Suspect]
     Indication: RHEUMATOID ARTHRITIS
     Dosage: 500 MG ORAL
     Route: 048
     Dates: start: 20070821
  9. FAMOTIDINE [Concomitant]
  10. PREDNISOLONE [Suspect]
     Indication: RHEUMATOID ARTHRITIS
     Dosage: 3.5 MG, ORAL
     Route: 048
     Dates: start: 20101109

REACTIONS (2)
  - NASOPHARYNGITIS [None]
  - DUODENAL ULCER HAEMORRHAGE [None]
